FAERS Safety Report 5939777-2 (Version None)
Quarter: 2008Q4

REPORT INFORMATION
  Report Type: 
  Country: None (occurrence: None)
  Receive Date: 20081030
  Receipt Date: 20081030
  Transmission Date: 20090506
  Serious: Yes (Hospitalization)
  Sender: FDA-Public Use
  Company Number: None

PATIENT
  Sex: Male
  Weight: 65.7716 kg

DRUGS (2)
  1. ATAZANAVIR SULFATE [Suspect]
     Indication: HIV INFECTION
     Dosage: ATAZANAVIE 300MG DAILY PO
     Route: 048
     Dates: start: 20080301, end: 20081020
  2. RITONAVIR [Suspect]
     Dosage: RITONAVIR 100MG DAILY PO
     Route: 048
     Dates: start: 20070913, end: 20071126

REACTIONS (1)
  - NEPHROLITHIASIS [None]
